FAERS Safety Report 7556018-3 (Version None)
Quarter: 2011Q2

REPORT INFORMATION
  Report Type: 
  Country: None (occurrence: None)
  Receive Date: 20110620
  Receipt Date: 20110609
  Transmission Date: 20111010
  Serious: Yes (Hospitalization)
  Sender: FDA-Public Use
  Company Number: US-BIOGENIDEC-2011BI020696

PATIENT
  Age: 50 Year
  Sex: Female

DRUGS (9)
  1. NICOTINE PATCH [Concomitant]
     Indication: SMOKING CESSATION THERAPY
     Dates: start: 20100407
  2. LAMICTAL [Concomitant]
     Indication: CONVULSION
     Route: 048
     Dates: start: 20110520
  3. PROVIGIL [Concomitant]
     Indication: FATIGUE
     Route: 048
     Dates: start: 20090101
  4. EFFEXOR [Concomitant]
     Indication: DEPRESSION
     Route: 048
     Dates: start: 20090802
  5. ZANAFLEX [Concomitant]
     Indication: MUSCLE SPASMS
     Route: 048
     Dates: start: 20060711
  6. TYLENOL-500 [Concomitant]
     Indication: PAIN
     Dates: start: 20060509
  7. PERCOCET [Concomitant]
     Indication: HEADACHE
     Dates: start: 20060807
  8. ASPIRIN [Concomitant]
     Indication: PAIN
  9. TYSABRI [Suspect]
     Indication: MULTIPLE SCLEROSIS
     Route: 042
     Dates: start: 20090630

REACTIONS (2)
  - MULTIPLE SCLEROSIS RELAPSE [None]
  - SWOLLEN TONGUE [None]
